FAERS Safety Report 5947817-X (Version None)
Quarter: 2008Q4

REPORT INFORMATION
  Report Type: 
  Country: None (occurrence: None)
  Receive Date: 20081107
  Receipt Date: 20081021
  Transmission Date: 20090506
  Serious: Yes (Death)
  Sender: FDA-Public Use
  Company Number: 20461

PATIENT
  Age: 70 Year
  Sex: Female

DRUGS (3)
  1. CISPLATIN [Suspect]
     Dates: start: 20080917, end: 20080926
  2. EPIRUBICIN [Suspect]
     Dates: start: 20080917, end: 20080926
  3. CAPECITABINE [Suspect]
     Dates: start: 20080917, end: 20080926

REACTIONS (1)
  - NEUTROPENIC SEPSIS [None]
